FAERS Safety Report 24606919 (Version 1)
Quarter: 2024Q4

REPORT INFORMATION
  Report Type: Spontaneous
  Country: TR (occurrence: TR)
  Receive Date: 20241112
  Receipt Date: 20241112
  Transmission Date: 20250114
  Serious: Yes (Hospitalization, Other)
  Sender: ALKEM
  Company Number: TR-ALKEM LABORATORIES LIMITED-TR-ALKEM-2024-20668

PATIENT
  Age: 28 Year
  Sex: Male

DRUGS (4)
  1. DICLOFENAC [Suspect]
     Active Substance: DICLOFENAC
     Indication: Ankylosing spondylitis
     Dosage: 100 MILLIGRAM, QD
     Route: 065
  2. ISONIAZID [Suspect]
     Active Substance: ISONIAZID
     Indication: Latent tuberculosis
     Dosage: 300 MILLIGRAM, QD
     Route: 065
  3. SULFASALAZINE [Suspect]
     Active Substance: SULFASALAZINE
     Indication: Ankylosing spondylitis
     Dosage: 1000 MILLIGRAM, QD
     Route: 065
  4. INFLIXIMAB [Concomitant]
     Active Substance: INFLIXIMAB
     Indication: Ankylosing spondylitis
     Dosage: 100 MILLIGRAM
     Route: 042

REACTIONS (2)
  - Acute psychosis [Recovered/Resolved]
  - Therapy non-responder [Unknown]
